FAERS Safety Report 13729252 (Version 3)
Quarter: 2017Q3

REPORT INFORMATION
  Report Type: Report from Study
  Country: PK (occurrence: PK)
  Receive Date: 20170707
  Receipt Date: 20170815
  Transmission Date: 20171127
  Serious: Yes (Hospitalization, Other)
  Sender: FDA-Public Use
  Company Number: PHHY2017PK099037

PATIENT
  Age: 32 Year
  Sex: Male
  Weight: 50 kg

DRUGS (1)
  1. TASIGNA [Suspect]
     Active Substance: NILOTINIB
     Indication: CHRONIC MYELOID LEUKAEMIA
     Dosage: 800 MG, QD (2 BD)
     Route: 048
     Dates: start: 20150519, end: 20170703

REACTIONS (16)
  - Musculoskeletal pain [Unknown]
  - Pyrexia [Unknown]
  - Pallor [Not Recovered/Not Resolved]
  - Vomiting [Not Recovered/Not Resolved]
  - Platelet count decreased [Unknown]
  - Dyspnoea at rest [Unknown]
  - Haemoglobin decreased [Unknown]
  - Pancytopenia [Unknown]
  - White blood cell count increased [Unknown]
  - Nausea [Unknown]
  - Anaemia [Unknown]
  - Asthenia [Not Recovered/Not Resolved]
  - Blast cell count increased [Unknown]
  - Leukopenia [Unknown]
  - Fatigue [Unknown]
  - Thrombocytopenia [Unknown]

NARRATIVE: CASE EVENT DATE: 20170703
